FAERS Safety Report 22674445 (Version 8)
Quarter: 2023Q4

REPORT INFORMATION
  Report Type: Report from Study
  Country: JP (occurrence: JP)
  Receive Date: 20230705
  Receipt Date: 20231016
  Transmission Date: 20240110
  Serious: Yes (Hospitalization)
  Sender: FDA-Public Use
  Company Number: JP-EXELIXIS-XL18423065329

PATIENT
  Age: 71 Year
  Sex: Male

DRUGS (38)
  1. CABOZANTINIB [Suspect]
     Active Substance: CABOZANTINIB
     Indication: Hormone-refractory prostate cancer
     Dosage: 40 MILLIGRAM, QD
     Route: 048
     Dates: start: 20230622, end: 20230627
  2. CABOZANTINIB [Suspect]
     Active Substance: CABOZANTINIB
     Dosage: 20 MILLIGRAM, QD
     Route: 048
     Dates: start: 20230804
  3. ATEZOLIZUMAB [Suspect]
     Active Substance: ATEZOLIZUMAB
     Indication: Hormone-refractory prostate cancer
     Dosage: 1200 MILLIGRAM, Q3WEEKS
     Route: 042
     Dates: start: 20230622
  4. ATEZOLIZUMAB [Suspect]
     Active Substance: ATEZOLIZUMAB
     Dosage: 1200 MILLIGRAM, Q3WEEKS
     Route: 042
     Dates: start: 20230714
  5. ACETAMINOPHEN [Concomitant]
     Active Substance: ACETAMINOPHEN
     Indication: Cancer pain
     Dosage: UNK
     Dates: start: 20230618, end: 20230619
  6. ACETAMINOPHEN [Concomitant]
     Active Substance: ACETAMINOPHEN
     Dosage: UNK
     Dates: start: 20230703, end: 20230703
  7. CELECOXIB [Concomitant]
     Active Substance: CELECOXIB
     Indication: Neck pain
     Dates: start: 20220413, end: 20230618
  8. EPERISONE HYDROCHLORIDE [Concomitant]
     Active Substance: EPERISONE HYDROCHLORIDE
     Indication: Neck pain
     Dosage: UNK
     Dates: start: 20220413, end: 20230713
  9. FERROUS SULFATE [Concomitant]
     Active Substance: FERROUS SULFATE
     Indication: Anaemia
     Dosage: UNK
     Dates: start: 20230603, end: 20230611
  10. FERROUS SULFATE [Concomitant]
     Active Substance: FERROUS SULFATE
     Dosage: UNK
     Dates: start: 20230619, end: 20230620
  11. AMLODIPINE BESYLATE\IRBESARTAN [Concomitant]
     Active Substance: AMLODIPINE BESYLATE\IRBESARTAN
     Indication: Hypertension
     Dosage: UNK
     Dates: start: 20211215, end: 20230713
  12. LOXOPROFEN [Concomitant]
     Active Substance: LOXOPROFEN
     Indication: Cancer pain
     Dosage: UNK
     Dates: start: 20230602, end: 20230703
  13. PRAVASTATIN SODIUM [Concomitant]
     Active Substance: PRAVASTATIN SODIUM
     Indication: Hyperlipidaemia
     Dosage: UNK
     Dates: start: 20211217, end: 20230706
  14. REBAMIPIDE [Concomitant]
     Active Substance: REBAMIPIDE
     Indication: Gastritis
     Dosage: UNK
     Dates: start: 20220413, end: 20230713
  15. TOARASET TOWA [Concomitant]
     Indication: Cancer pain
     Dates: start: 20230602, end: 20230620
  16. URSODIOL [Concomitant]
     Active Substance: URSODIOL
     Indication: Liver disorder
     Dosage: UNK
     Dates: start: 20191127, end: 20230713
  17. Oxinorm [Concomitant]
     Indication: Cancer pain
     Dosage: UNK
     Dates: start: 20230621, end: 20230628
  18. Oxinorm [Concomitant]
     Indication: Cancer pain
     Dosage: UNK
     Dates: start: 20230629
  19. Oxycodone nx [Concomitant]
     Indication: Cancer pain
     Dosage: UNK
     Dates: start: 20230620, end: 20230623
  20. Oxycodone nx [Concomitant]
     Indication: Cancer pain
     Dosage: UNK
     Dates: start: 20230703, end: 20230706
  21. Oxycodone nx [Concomitant]
     Dosage: UNK
     Dates: start: 20230706
  22. CALCIUM CHLORIDE\POTASSIUM CHLORIDE\SODIUM ACETATE\SODIUM CHLORIDE [Concomitant]
     Active Substance: CALCIUM CHLORIDE\POTASSIUM CHLORIDE\SODIUM ACETATE\SODIUM CHLORIDE
     Indication: Cancer pain
     Dates: start: 20230618, end: 20230618
  23. PEGFILGRASTIM [Concomitant]
     Active Substance: PEGFILGRASTIM
     Indication: White blood cell count decreased
     Dates: start: 20230718, end: 20230718
  24. CALONAL [Concomitant]
     Active Substance: ACETAMINOPHEN
     Indication: Cancer pain
     Dates: start: 20230622, end: 20230628
  25. CALONAL [Concomitant]
     Active Substance: ACETAMINOPHEN
     Indication: Cancer pain
     Dosage: UNK
     Dates: start: 20230629, end: 20230703
  26. DAYVIGO [Concomitant]
     Active Substance: LEMBOREXANT
     Indication: Insomnia
     Dates: start: 20230704
  27. FENTANYL [Concomitant]
     Active Substance: FENTANYL
     Indication: Cancer pain
     Dates: start: 20230623, end: 20230628
  28. FENTANYL [Concomitant]
     Active Substance: FENTANYL
     Indication: Cancer pain
     Dosage: UNK
     Dates: start: 20230629, end: 20230703
  29. GLYCERIN [Concomitant]
     Active Substance: GLYCERIN
     Indication: Constipation
     Dates: start: 20230621, end: 20230621
  30. LEUPLIN [Concomitant]
     Active Substance: LEUPROLIDE ACETATE
     Indication: Prostate cancer metastatic
     Dates: start: 20230623
  31. PRAVASTATIN SODIUM [Concomitant]
     Active Substance: PRAVASTATIN SODIUM
     Indication: Hyperlipidaemia
     Dates: start: 20230707, end: 20230713
  32. PRIMPERAN [Concomitant]
     Active Substance: METOCLOPRAMIDE HYDROCHLORIDE
     Indication: Nausea
     Dates: start: 20230714
  33. SODIUM PICOSULFATE [Concomitant]
     Active Substance: SODIUM PICOSULFATE
     Indication: Constipation
     Dates: start: 20230620
  34. SYMPROIC [Concomitant]
     Active Substance: NALDEMEDINE
     Indication: Constipation
     Dates: start: 20230620
  35. DICLOFENAC SODIUM [Concomitant]
     Active Substance: DICLOFENAC\DICLOFENAC SODIUM
     Indication: Cancer pain
     Dates: start: 20230703
  36. GOSERELIN [Concomitant]
     Active Substance: GOSERELIN
     Indication: Prostate cancer
     Dates: start: 20200708, end: 20230622
  37. Primperan complex [Concomitant]
     Indication: Nausea
     Dates: start: 20230714
  38. MAGNESIUM OXIDE [Concomitant]
     Active Substance: MAGNESIUM OXIDE
     Indication: Constipation
     Dates: start: 20230818, end: 20230824

REACTIONS (4)
  - Febrile neutropenia [Recovered/Resolved]
  - Febrile neutropenia [Recovered/Resolved]
  - Pyrexia [Recovered/Resolved]
  - Vomiting [Recovered/Resolved]

NARRATIVE: CASE EVENT DATE: 20230628
